FAERS Safety Report 5669762-X (Version None)
Quarter: 2008Q1

REPORT INFORMATION
  Report Type: 
  Country: None (occurrence: None)
  Receive Date: 20080317
  Receipt Date: 20080311
  Transmission Date: 20080703
  Serious: Yes (Hospitalization)
  Sender: FDA-Public Use
  Company Number: CA-GENENTECH-256602

PATIENT
  Sex: Male

DRUGS (9)
  1. EFALIZUMAB [Suspect]
     Indication: PSORIASIS
     Dosage: 0.7 MG/KG, SINGLE
     Route: 058
     Dates: start: 20070501, end: 20080206
  2. EFALIZUMAB [Suspect]
     Dosage: 1 MG/KG, 1/WEEK
     Route: 058
     Dates: start: 20070508, end: 20080206
  3. SULFASALAZINE [Concomitant]
     Indication: PSORIATIC ARTHROPATHY
     Dosage: 500 MG, TID
     Route: 048
     Dates: start: 20060401, end: 20080131
  4. DIPROSALIC [Concomitant]
     Indication: PSORIASIS
     Dosage: UNK, UNK
     Route: 061
     Dates: start: 20060901
  5. LCD [Concomitant]
     Indication: PSORIASIS
     Dosage: UNK, UNK
     Route: 061
     Dates: start: 20050901
  6. GLUCOSAMINE [Concomitant]
     Indication: PSORIATIC ARTHROPATHY
     Dosage: 750 MG, QD
     Route: 048
     Dates: start: 20061001
  7. MULTI-VITAMIN [Concomitant]
     Indication: MEDICAL DIET
     Dosage: 1 DF, QD
     Dates: start: 20061001
  8. CAPTOPRIL [Concomitant]
     Indication: HYPERTENSION
     Dosage: 2.5 MG, QD
     Route: 048
     Dates: start: 20070510, end: 20080131
  9. FISH OIL [Concomitant]
     Indication: DRUG USE FOR UNKNOWN INDICATION

REACTIONS (2)
  - PSORIATIC ARTHROPATHY [None]
  - PULMONARY EMBOLISM [None]
